FAERS Safety Report 9670804 (Version 3)
Quarter: 2014Q2

REPORT INFORMATION
  Report Type: Spontaneous
  Country: AR (occurrence: AR)
  Receive Date: 20131106
  Receipt Date: 20140404
  Transmission Date: 20141212
  Serious: Yes (Other)
  Sender: FDA-Public Use
  Company Number: AR-AMGEN-ARGSP2013077646

PATIENT
  Age: 54 Year
  Sex: Female

DRUGS (2)
  1. ENBREL [Suspect]
     Indication: RHEUMATOID ARTHRITIS
     Dosage: 50 MG, WEEKLY
     Route: 065
     Dates: start: 20110506
  2. ARTRAIT                            /00113801/ [Concomitant]
     Dosage: 20 MG, WEEKLY

REACTIONS (3)
  - Arthropathy [Not Recovered/Not Resolved]
  - Post procedural complication [Not Recovered/Not Resolved]
  - Osteomyelitis [Not Recovered/Not Resolved]
